FAERS Safety Report 8601499-7 (Version None)
Quarter: 2012Q3

REPORT INFORMATION
  Report Type: 
  Country: None (occurrence: None)
  Receive Date: 20120817
  Receipt Date: 20111011
  Transmission Date: 20120928
  Serious: Yes (Other)
  Sender: FDA-Public Use
  Company Number: US-BRISTOL-MYERS SQUIBB COMPANY-16152761

PATIENT
  Age: 8 Decade
  Sex: Male

DRUGS (1)
  1. SPRYCEL [Suspect]
     Indication: CHRONIC MYELOID LEUKAEMIA
     Dosage: REDUCED TO 70MG DAILY

REACTIONS (2)
  - PULMONARY OEDEMA [None]
  - CARDIAC FAILURE CONGESTIVE [None]
